FAERS Safety Report 8370341-4 (Version None)
Quarter: 2012Q2

REPORT INFORMATION
  Report Type: 
  Country: None (occurrence: None)
  Receive Date: 20120518
  Receipt Date: 20111012
  Transmission Date: 20120825
  Serious: No
  Sender: FDA-Public Use
  Company Number: US-ASTRAZENECA-2011SE68271

PATIENT
  Age: 66 Year
  Sex: Female

DRUGS (5)
  1. CARDIOVASCULAR SYSTEM DRUGS [Concomitant]
     Dosage: UNKNOWN
  2. MULTI-VITAMINS [Concomitant]
     Dosage: UNKNOWN
  3. CHOLESTEROL- AND TRIGLYCERIDE REDUCERS [Concomitant]
     Dosage: UNKNOWN
  4. PRILOSEC OTC [Suspect]
     Dosage: 1 TABLET, OCCASSIONALLY
     Route: 048
     Dates: start: 20110627, end: 20110803
  5. CALCIUM [Concomitant]
     Dosage: UNKNOWN

REACTIONS (3)
  - BLOOD PRESSURE DECREASED [None]
  - INFLUENZA LIKE ILLNESS [None]
  - INAPPROPRIATE SCHEDULE OF DRUG ADMINISTRATION [None]
